FAERS Safety Report 9009836 (Version 1)
Quarter: 2013Q1

REPORT INFORMATION
  Report Type: Spontaneous
  Country: US (occurrence: US)
  Receive Date: 20130110
  Receipt Date: 20130110
  Transmission Date: 20140127
  Serious: No
  Sender: FDA-Public Use
  Company Number: US-009507513-1301USA004459

PATIENT
  Age: 3 Year
  Sex: Female
  Weight: 20.41 kg

DRUGS (1)
  1. CLARITIN ORAL SOLUTION [Suspect]
     Indication: COUGH
     Dosage: 5 MG, BID
     Route: 048
     Dates: start: 20130101

REACTIONS (3)
  - Overdose [Unknown]
  - Accidental exposure to product by child [Unknown]
  - Off label use [Unknown]
